APPROVED DRUG PRODUCT: DEFERASIROX
Active Ingredient: DEFERASIROX
Strength: 90MG
Dosage Form/Route: GRANULE;ORAL
Application: A215026 | Product #001 | TE Code: AB
Applicant: CIPLA LTD
Approved: Feb 23, 2022 | RLD: No | RS: No | Type: RX